FAERS Safety Report 5358124-0 (Version None)
Quarter: 2007Q2

REPORT INFORMATION
  Report Type: 
  Country: None (occurrence: None)
  Receive Date: 20070530
  Receipt Date: 20061213
  Transmission Date: 20071010
  Serious: Yes (Hospitalization)
  Sender: FDA-Public Use
  Company Number: US200606000085

PATIENT
  Age: 52 Year
  Sex: Male
  Weight: 138.3 kg

DRUGS (2)
  1. ZYPREXA [Suspect]
     Dosage: SEE IMAGE
     Dates: start: 20020101
  2. ZYPREXA [Suspect]
     Dosage: SEE IMAGE
     Dates: start: 20020101

REACTIONS (2)
  - CHEST PAIN [None]
  - DIABETES MELLITUS [None]
